FAERS Safety Report 8899426 (Version 1)
Quarter: 2012Q4

REPORT INFORMATION
  Report Type: 
  Country: US (occurrence: US)
  Receive Date: 20121108
  Receipt Date: 20121108
  Transmission Date: 20130627
  Serious: No
  Sender: FDA-Public Use
  Company Number: US-AMGEN-USASP2012036057

PATIENT
  Age: 68 Year
  Sex: Female
  Weight: 65.76 kg

DRUGS (7)
  1. ENBREL [Suspect]
     Indication: PRODUCT USED FOR UNKNOWN INDICATION
     Dosage: 50 mg, qwk
     Route: 058
  2. HUMALOG [Concomitant]
     Dosage: 100 UNK, UNK
  3. FOSAMAX [Concomitant]
     Dosage: 10 mg, UNK
  4. VIVELLE                            /00045401/ [Concomitant]
     Dosage: 0.05 mg, UNK
  5. FOLIC ACID [Concomitant]
     Dosage: 1 mg, UNK
  6. REQUIP [Concomitant]
     Dosage: 1 mg, UNK
  7. VITAMIN D /00107901/ [Concomitant]
     Dosage: 1000 IU, UNK

REACTIONS (2)
  - Bronchitis [Unknown]
  - Pneumonia [Unknown]
